FAERS Safety Report 7153595-1 (Version None)
Quarter: 2010Q4

REPORT INFORMATION
  Report Type: 
  Country: None (occurrence: None)
  Receive Date: 20101213
  Receipt Date: 20101203
  Transmission Date: 20110411
  Serious: Yes (Other)
  Sender: FDA-Public Use
  Company Number: US-ABBOTT-10P-163-0689684-00

PATIENT
  Age: 42 Year
  Sex: Male

DRUGS (3)
  1. HUMIRA [Suspect]
     Indication: ARTHRITIS
     Dates: start: 20090901, end: 20101202
  2. PREDNISONE [Concomitant]
     Indication: ARTHRALGIA
  3. HYDROCODONE [Concomitant]
     Indication: ARTHRALGIA
     Dosage: 10/325 MG THREE TIMES DAILY

REACTIONS (11)
  - BURNING SENSATION [None]
  - COLD SWEAT [None]
  - COUGH [None]
  - FEELING COLD [None]
  - HEADACHE [None]
  - HYPERHIDROSIS [None]
  - INJECTION SITE PAIN [None]
  - NASAL CONGESTION [None]
  - NASOPHARYNGITIS [None]
  - SALIVARY DUCT OBSTRUCTION [None]
  - SALIVARY GLAND CALCULUS REMOVAL [None]
